FAERS Safety Report 21933016 (Version 4)
Quarter: 2024Q1

REPORT INFORMATION
  Report Type: Report from Study
  Country: US (occurrence: US)
  Receive Date: 20230131
  Receipt Date: 20240329
  Transmission Date: 20240410
  Serious: Yes (Hospitalization)
  Sender: FDA-Public Use
  Company Number: US-BAUSCH-BL-2023-001477

PATIENT
  Age: 60 Year
  Sex: Female

DRUGS (1)
  1. XIFAXAN [Suspect]
     Active Substance: RIFAXIMIN
     Indication: Hepatic encephalopathy
     Route: 048
     Dates: start: 202209

REACTIONS (3)
  - Portal shunt procedure [Unknown]
  - Constipation [Recovered/Resolved]
  - Product dose omission in error [Unknown]

NARRATIVE: CASE EVENT DATE: 20230110
